FAERS Safety Report 13927477 (Version 1)
Quarter: 2017Q3

REPORT INFORMATION
  Report Type: Spontaneous
  Country: US (occurrence: US)
  Receive Date: 20170831
  Receipt Date: 20170831
  Transmission Date: 20171127
  Serious: Yes (Other)
  Sender: FDA-Public Use
  Company Number: None

PATIENT
  Age: 28 Year
  Sex: Female
  Weight: 72 kg

DRUGS (1)
  1. FLURESS [Suspect]
     Active Substance: BENOXINATE HYDROCHLORIDE\FLUORESCEIN SODIUM
     Dosage: ?          OTHER STRENGTH:N/A;QUANTITY:2 DROP(S);?
     Route: 047
     Dates: start: 20170828, end: 20170828

REACTIONS (4)
  - Seizure [None]
  - Nausea [None]
  - Feeling hot [None]
  - Loss of consciousness [None]

NARRATIVE: CASE EVENT DATE: 20170828
